FAERS Safety Report 21584178 (Version 2)
Quarter: 2023Q1

REPORT INFORMATION
  Report Type: Report from Study
  Country: US (occurrence: US)
  Receive Date: 20221111
  Receipt Date: 20230224
  Transmission Date: 20230417
  Serious: No
  Sender: FDA-Public Use
  Company Number: US-ABBVIE-22K-163-4515896-00

PATIENT
  Age: 60 Year
  Sex: Female

DRUGS (2)
  1. SKYRIZI [Suspect]
     Active Substance: RISANKIZUMAB-RZAA
     Indication: Psoriasis
     Dosage: WEEK 0
     Route: 058
     Dates: start: 20220722
  2. SKYRIZI [Suspect]
     Active Substance: RISANKIZUMAB-RZAA
     Indication: Eczema
     Dosage: WEEK 4, EVERY 12 WEEKS THEREAFTER
     Route: 058

REACTIONS (7)
  - COVID-19 [Unknown]
  - Drug ineffective [Unknown]
  - COVID-19 [Recovered/Resolved]
  - Psoriasis [Unknown]
  - Eczema [Unknown]
  - Off label use [Unknown]
  - Condition aggravated [Unknown]

NARRATIVE: CASE EVENT DATE: 20220701
